FAERS Safety Report 11240031 (Version 1)
Quarter: 2015Q3

REPORT INFORMATION
  Report Type: Spontaneous
  Country: US (occurrence: None)
  Receive Date: 20150701
  Receipt Date: 20150701
  Transmission Date: 20151125
  Serious: No
  Sender: FDA-Public Use
  Company Number: None

PATIENT
  Age: 64 Year
  Sex: Male
  Weight: 54 kg

DRUGS (1)
  1. CETUXIMAB [Suspect]
     Active Substance: CETUXIMAB
     Indication: CHEMOTHERAPY
     Dosage: 660 MG  UD  IV
     Route: 042
     Dates: start: 20150309, end: 20150309

REACTIONS (3)
  - Lip oedema [None]
  - Hypotension [None]
  - Rash [None]

NARRATIVE: CASE EVENT DATE: 20150309
